FAERS Safety Report 17443255 (Version 1)
Quarter: 2020Q1

REPORT INFORMATION
  Report Type: Spontaneous
  Country: FR (occurrence: FR)
  Receive Date: 20200221
  Receipt Date: 20200221
  Transmission Date: 20200409
  Serious: Yes (Hospitalization)
  Sender: FDA-Public Use
  Company Number: FR-ROCHE-2550152

PATIENT
  Age: 44 Year
  Sex: Male

DRUGS (6)
  1. IMIPENEM CILASTATINE MYLAN [Suspect]
     Active Substance: IMIPENEM
     Indication: INFECTION
     Route: 041
     Dates: start: 20191228, end: 20191230
  2. ROVALCYTE [Suspect]
     Active Substance: VALGANCICLOVIR HYDROCHLORIDE
     Indication: INFECTION PROPHYLAXIS
     Route: 048
     Dates: start: 201903, end: 20191226
  3. JAKAVI [Suspect]
     Active Substance: RUXOLITINIB
     Indication: ENCEPHALITIS
     Route: 048
     Dates: start: 201903
  4. BACTRIM [Suspect]
     Active Substance: SULFAMETHOXAZOLE\TRIMETHOPRIM
     Indication: INFECTION PROPHYLAXIS
     Dosage: 1 CP
     Route: 048
     Dates: start: 201903, end: 20191226
  5. CEFOTAXIME [Suspect]
     Active Substance: CEFOTAXIME SODIUM
     Indication: INFECTION
     Route: 041
     Dates: start: 20191219, end: 20200102
  6. PRIVIGEN [Suspect]
     Active Substance: HUMAN IMMUNOGLOBULIN G
     Indication: HYPOGAMMAGLOBULINAEMIA
     Route: 041
     Dates: start: 20191224, end: 20191224

REACTIONS (2)
  - Neutropenia [Recovered/Resolved]
  - Agranulocytosis [Recovered/Resolved]

NARRATIVE: CASE EVENT DATE: 20191217
